FAERS Safety Report 7224909-9 (Version None)
Quarter: 2011Q1

REPORT INFORMATION
  Report Type: 
  Country: None (occurrence: None)
  Receive Date: 20110113
  Receipt Date: 20110105
  Transmission Date: 20110831
  Serious: Yes (Hospitalization)
  Sender: FDA-Public Use
  Company Number: FR-MILLENNIUM PHARMACEUTICALS, INC.-2011-00068

PATIENT

DRUGS (14)
  1. ALLOPURINOL [Concomitant]
     Indication: HYPERURICAEMIA
     Dosage: 200 MG, UNK
     Route: 048
     Dates: start: 20090101
  2. NEORECORMON [Concomitant]
     Indication: ANAEMIA
     Dosage: 30000 UNK, UNK
     Route: 058
     Dates: start: 20100512
  3. GRANOCYTE                          /01003403/ [Concomitant]
     Indication: PROPHYLAXIS
     Dosage: UNK
     Route: 058
     Dates: start: 20100715
  4. VELCADE [Suspect]
     Indication: MULTIPLE MYELOMA
     Dosage: 2.6 MG, UNK
     Route: 042
     Dates: start: 20100512, end: 20101221
  5. BENDAMUSTINE [Suspect]
     Indication: MULTIPLE MYELOMA
     Dosage: 138.75 MG, UNK
     Route: 042
     Dates: start: 20100512, end: 20101214
  6. ACUILIX                            /01133601/ [Concomitant]
     Indication: HYPERTENSION
     Dosage: 20 MG, UNK
     Route: 048
     Dates: start: 20090101
  7. ZELITREX                           /01269701/ [Concomitant]
     Indication: PROPHYLAXIS
     Dosage: 500 MG, UNK
     Route: 048
     Dates: start: 20100609
  8. ZOPHREN                            /00955301/ [Concomitant]
     Indication: PROPHYLAXIS
     Dosage: 8 MG, UNK
     Route: 042
     Dates: start: 20100512
  9. DEXAMETHASONE [Suspect]
     Indication: MULTIPLE MYELOMA
     Dosage: 20 MG, UNK
     Route: 048
     Dates: start: 20100512, end: 20101221
  10. DURAGESIC-100 [Concomitant]
     Dosage: UNK
     Route: 062
     Dates: start: 20101130
  11. OMIX [Concomitant]
     Indication: PROSTATIC ADENOMA
     Dosage: 0.4 MG, UNK
     Route: 048
     Dates: start: 20040101
  12. VASTAREL [Concomitant]
     Dosage: UNK
     Route: 048
     Dates: start: 20100613
  13. MOVICOL                            /01053601/ [Concomitant]
     Indication: PROPHYLAXIS
     Dosage: UNK
     Route: 048
     Dates: start: 20100609
  14. MOPRAL                             /00661201/ [Concomitant]
     Indication: PROPHYLAXIS
     Dosage: 20 MG, UNK
     Route: 048
     Dates: start: 20100519

REACTIONS (2)
  - FEBRILE NEUTROPENIA [None]
  - LUNG DISORDER [None]
